FAERS Safety Report 10211012 (Version 2)
Quarter: 2014Q2

REPORT INFORMATION
  Report Type: Spontaneous
  Country: JP (occurrence: JP)
  Receive Date: 20140602
  Receipt Date: 20140609
  Transmission Date: 20141212
  Serious: Yes (Death, Hospitalization)
  Sender: FDA-Public Use
  Company Number: JP-NAPPMUNDI-GBR-2014-0018579

PATIENT
  Age: 85 Year
  Sex: Male

DRUGS (2)
  1. OXYCODONE HYDROCHLORIDE [Suspect]
     Indication: CANCER PAIN
     Dosage: 40 MG, DAILY
     Route: 042
     Dates: start: 20140511, end: 20140511
  2. OXYCODONE HYDROCHLORIDE [Suspect]
     Dosage: 24 MG, DAILY
     Route: 042
     Dates: start: 20140512, end: 20140516

REACTIONS (2)
  - Delirium [Not Recovered/Not Resolved]
  - Respiratory failure [Fatal]
